FAERS Safety Report 21773746 (Version 1)
Quarter: 2022Q4

REPORT INFORMATION
  Report Type: Report from Study
  Country: CN (occurrence: None)
  Receive Date: 20221223
  Receipt Date: 20221223
  Transmission Date: 20230112
  Serious: Yes (Hospitalization)
  Sender: FDA-Public Use
  Company Number: 2022A411211

PATIENT
  Age: 22255 Day
  Sex: Male

DRUGS (24)
  1. DURVALUMAB [Suspect]
     Active Substance: DURVALUMAB
     Indication: Non-small cell lung cancer
     Route: 042
     Dates: start: 20220930, end: 20220930
  2. DURVALUMAB [Suspect]
     Active Substance: DURVALUMAB
     Indication: Non-small cell lung cancer
     Route: 042
     Dates: start: 20221028, end: 20221028
  3. DURVALUMAB [Suspect]
     Active Substance: DURVALUMAB
     Indication: Non-small cell lung cancer
     Route: 042
     Dates: start: 20221118, end: 20221118
  4. PEMETREXED [Suspect]
     Active Substance: PEMETREXED
     Indication: Non-small cell lung cancer
     Route: 042
     Dates: start: 20220930, end: 20220930
  5. PEMETREXED [Suspect]
     Active Substance: PEMETREXED
     Indication: Non-small cell lung cancer
     Route: 042
     Dates: start: 20221028, end: 20221028
  6. PEMETREXED [Suspect]
     Active Substance: PEMETREXED
     Indication: Non-small cell lung cancer
     Route: 042
     Dates: start: 20221118, end: 20221118
  7. CARBOPLATIN [Suspect]
     Active Substance: CARBOPLATIN
     Indication: Non-small cell lung cancer
     Dosage: 4.5 AUC EVERY THREE WEEKS
     Route: 042
     Dates: start: 20220930, end: 20220930
  8. CARBOPLATIN [Suspect]
     Active Substance: CARBOPLATIN
     Indication: Non-small cell lung cancer
     Dosage: 4.7 AUC EVERY THREE WEEKS
     Route: 042
     Dates: start: 20221028, end: 20221028
  9. CARBOPLATIN [Suspect]
     Active Substance: CARBOPLATIN
     Indication: Non-small cell lung cancer
     Dosage: 4.8 AUC EVERY THREE WEEKS
     Route: 042
     Dates: start: 20221118, end: 20221118
  10. POTASSIUM CHLORIDE INJECTION10% [Concomitant]
     Indication: Mineral supplementation
     Route: 042
     Dates: start: 20221116, end: 20221120
  11. POTASSIUM CHLORIDE INJECTION10% [Concomitant]
     Indication: Mineral supplementation
     Route: 042
     Dates: start: 20221118, end: 20221118
  12. POTASSIUM CHLORIDE INJECTION10% [Concomitant]
     Indication: Mineral supplementation
     Route: 042
     Dates: start: 20221118, end: 20221118
  13. INSULIN NOS [Concomitant]
     Active Substance: INSULIN NOS
     Indication: Blood glucose
     Route: 042
     Dates: start: 20221116, end: 20221120
  14. SODIUM GLUCURONIC ACID INJECTION [Concomitant]
     Indication: Liver transplant rejection
     Route: 042
     Dates: start: 20221116, end: 20221120
  15. BROMHEXINE HYDROCHLORIDE AND GLUCOSE INJECTION [Concomitant]
     Indication: Productive cough
     Route: 042
     Dates: start: 20221116, end: 20221120
  16. FOLIC ACID [Concomitant]
     Active Substance: FOLIC ACID
     Indication: Premedication
     Route: 048
     Dates: start: 20221118, end: 20221120
  17. DEXAMETHASONE ACETATE [Concomitant]
     Active Substance: DEXAMETHASONE ACETATE
     Indication: Premedication
     Route: 048
     Dates: start: 20221118, end: 20221120
  18. TROPISETRON HYDROCHLORIDE INJECTION [Concomitant]
     Indication: Vomiting
     Route: 042
     Dates: start: 20221118, end: 20221120
  19. OMEPRAZOLE SODIUM FOR INJECTION [Concomitant]
     Indication: Inhibin A
     Route: 042
     Dates: start: 20221118, end: 20221120
  20. IOPAMIDOL [Concomitant]
     Active Substance: IOPAMIDOL
     Indication: Radiotherapy
     Route: 042
     Dates: start: 20221116, end: 20221116
  21. DEXAMETHASONE SODIUM PHOSPHATE [Concomitant]
     Active Substance: DEXAMETHASONE SODIUM PHOSPHATE
     Indication: Radiotherapy
     Route: 042
     Dates: start: 20221116, end: 20221116
  22. COMPOUND MEGLUMINE DIATRIZOATE INJECTION [Concomitant]
     Indication: Radiotherapy
     Route: 042
     Dates: start: 20221116, end: 20221116
  23. FUROSEMIDE [Concomitant]
     Active Substance: FUROSEMIDE
     Indication: Polyuria
     Route: 042
     Dates: start: 20221118, end: 20221118
  24. CONCENTRATED SODIUM CHLORIDE INJECTION [Concomitant]
     Indication: Blood sodium
     Route: 042
     Dates: start: 20221118, end: 20221118

REACTIONS (1)
  - Agranulocytosis [Not Recovered/Not Resolved]

NARRATIVE: CASE EVENT DATE: 20221216
